FAERS Safety Report 18195756 (Version 3)
Quarter: 2020Q3

REPORT INFORMATION
  Report Type: Spontaneous
  Country: RU (occurrence: RU)
  Receive Date: 20200825
  Receipt Date: 20200928
  Transmission Date: 20201103
  Serious: Yes (Other)
  Sender: FDA-Public Use
  Company Number: NVSC2020RU228538

PATIENT
  Sex: Female

DRUGS (2)
  1. SANDIMMUN NEORAL [Suspect]
     Active Substance: CYCLOSPORINE
     Indication: RENAL TRANSPLANT
     Dosage: UNK
     Route: 065
  2. SANDIMMUN NEORAL [Suspect]
     Active Substance: CYCLOSPORINE
     Dosage: 75 MG, BID (1?1.5 WEEKS AGO)
     Route: 048

REACTIONS (6)
  - Headache [Not Recovered/Not Resolved]
  - Pancreatitis [Unknown]
  - Taste disorder [Not Recovered/Not Resolved]
  - Oral discomfort [Not Recovered/Not Resolved]
  - Product substitution issue [Unknown]
  - Gastrointestinal disorder [Not Recovered/Not Resolved]
